FAERS Safety Report 7334482-2 (Version None)
Quarter: 2011Q1

REPORT INFORMATION
  Report Type: 
  Country: None (occurrence: None)
  Receive Date: 20110222
  Receipt Date: 20110209
  Transmission Date: 20110831
  Serious: Yes (Death)
  Sender: FDA-Public Use
  Company Number: TPA2010A03307

PATIENT
  Age: 49 Year
  Sex: Male

DRUGS (4)
  1. SITAGLIPTIN PHOSPHATE [Suspect]
     Indication: TYPE 2 DIABETES MELLITUS
     Dosage: 100 MG (100 MG, DAILY) PER ORAL
     Route: 048
     Dates: start: 20090602, end: 20100305
  2. PIOGLITAZONE HCL [Suspect]
     Indication: TYPE 2 DIABETES MELLITUS
     Dosage: 15 MG (15 MG, 15 MG, DAILY), ORAL;
     Route: 048
     Dates: start: 20090602, end: 20100305
  3. PREGABALIN [Suspect]
     Dates: start: 20090630, end: 20100305
  4. TAB PLACEBO BASELINE THERAPY (PLACEBO_ [Concomitant]

REACTIONS (2)
  - MYOCARDIAL INFARCTION [None]
  - CARDIAC FAILURE CONGESTIVE [None]
